FAERS Safety Report 11826777 (Version 1)
Quarter: 2015Q4

REPORT INFORMATION
  Report Type: Spontaneous
  Country: FR (occurrence: FR)
  Receive Date: 20151211
  Receipt Date: 20151211
  Transmission Date: 20160305
  Serious: Yes (Hospitalization)
  Sender: FDA-Public Use
  Company Number: FR-ASTRAZENECA-2015SF23346

PATIENT
  Age: 29518 Day
  Sex: Female

DRUGS (9)
  1. GLUCOPHAGE [Suspect]
     Active Substance: METFORMIN HYDROCHLORIDE
     Indication: DIABETES MELLITUS
     Dosage: (NON AZ PRODUCT) 1000 MG, THREE TIMES A DAY
     Route: 048
     Dates: end: 20150828
  2. OMEPRAZOLE. [Concomitant]
     Active Substance: OMEPRAZOLE
     Dosage: FOR THREE DAYS
  3. DIAMICRON [Suspect]
     Active Substance: GLICLAZIDE
     Indication: DIABETES MELLITUS
     Route: 048
     Dates: end: 20150828
  4. CARDENSIEL [Concomitant]
     Active Substance: BISOPROLOL FUMARATE
  5. PRETERAX [Concomitant]
     Active Substance: INDAPAMIDE\PERINDOPRIL
  6. ONGLYZA [Suspect]
     Active Substance: SAXAGLIPTIN HYDROCHLORIDE
     Indication: DIABETES MELLITUS
     Route: 048
     Dates: end: 20150828
  7. KARDEGIC [Concomitant]
     Active Substance: ASPIRIN LYSINE
  8. TAHOR [Concomitant]
     Active Substance: ATORVASTATIN CALCIUM
  9. PROFENID [Concomitant]
     Active Substance: KETOPROFEN
     Dosage: FOR THREE DAYS (LUMBOSCIATALGIA)

REACTIONS (8)
  - Acute kidney injury [Unknown]
  - Lactic acidosis [Unknown]
  - Bladder dilatation [Unknown]
  - Tubulointerstitial nephritis [Unknown]
  - Dysarthria [Recovered/Resolved]
  - Hypoglycaemia [Recovered/Resolved]
  - Psychomotor skills impaired [Recovered/Resolved]
  - Hyponatraemia [Unknown]

NARRATIVE: CASE EVENT DATE: 20150827
